FAERS Safety Report 16478467 (Version 1)
Quarter: 2019Q2

REPORT INFORMATION
  Report Type: Spontaneous
  Country: DE (occurrence: DE)
  Receive Date: 20190626
  Receipt Date: 20190626
  Transmission Date: 20190711
  Serious: Yes (Hospitalization, Other)
  Sender: FDA-Public Use
  Company Number: DE-MYLANLABS-2019M1058031

PATIENT
  Sex: Female

DRUGS (6)
  1. ORFIRIL [Suspect]
     Active Substance: VALPROATE SODIUM
     Indication: EPILEPSY
     Dosage: UNK
     Dates: start: 2017
  2. PETNIDAN [Suspect]
     Active Substance: ETHOSUXIMIDE
     Dosage: UNK
     Dates: start: 201801, end: 201807
  3. LAMOTRIGINE. [Suspect]
     Active Substance: LAMOTRIGINE
     Indication: EPILEPSY
     Dosage: UNK
     Dates: end: 201712
  4. PETNIDAN [Suspect]
     Active Substance: ETHOSUXIMIDE
     Dosage: REDUCED BY 250 MG IN THE EVENING
     Dates: start: 201807
  5. OSPOLOT [Suspect]
     Active Substance: SULTHIAME
     Indication: EPILEPSY
     Dosage: UNK
     Dates: start: 201712, end: 201801
  6. PETNIDAN [Suspect]
     Active Substance: ETHOSUXIMIDE
     Indication: EPILEPSY
     Dosage: UNK
     Dates: start: 201612

REACTIONS (6)
  - Drug ineffective [Recovered/Resolved]
  - Inappropriate schedule of product administration [Recovered/Resolved]
  - Dyspnoea [Unknown]
  - Epilepsy [Recovered/Resolved]
  - Abdominal pain [Unknown]
  - Seizure [Recovered/Resolved]

NARRATIVE: CASE EVENT DATE: 201710
